FAERS Safety Report 13328253 (Version 1)
Quarter: 2017Q1

REPORT INFORMATION
  Report Type: Spontaneous
  Country: US (occurrence: US)
  Receive Date: 20170310
  Receipt Date: 20170310
  Transmission Date: 20170428
  Serious: Yes (Other)
  Sender: FDA-Public Use
  Company Number: None

PATIENT
  Age: 68 Year
  Sex: Female
  Weight: 90 kg

DRUGS (7)
  1. BUPROPION. [Suspect]
     Active Substance: BUPROPION
     Indication: DEPRESSION
     Dosage: ?          QUANTITY:1 TABLET(S);?THRE TIMES A DAY
     Route: 048
     Dates: start: 20170103
  2. ZYRTEC [Concomitant]
     Active Substance: CETIRIZINE HYDROCHLORIDE
  3. BUSPORION [Concomitant]
  4. BUPROPION. [Concomitant]
     Active Substance: BUPROPION
  5. VITAMIN D [Concomitant]
     Active Substance: CHOLECALCIFEROL
  6. CLARITIN [Concomitant]
     Active Substance: LORATADINE
  7. ALLEGRA [Concomitant]
     Active Substance: FEXOFENADINE HYDROCHLORIDE

REACTIONS (6)
  - Deafness unilateral [None]
  - Ear pruritus [None]
  - Dizziness [None]
  - Hypersensitivity [None]
  - Ear infection [None]
  - Yawning [None]

NARRATIVE: CASE EVENT DATE: 20170301
